FAERS Safety Report 5902360-9 (Version None)
Quarter: 2008Q3

REPORT INFORMATION
  Report Type: 
  Country: None (occurrence: None)
  Receive Date: 20080919
  Receipt Date: 20080707
  Transmission Date: 20090109
  Serious: No
  Sender: FDA-Public Use
  Company Number: US-WYE-H04953908

PATIENT
  Age: 47 Year
  Sex: Female
  Weight: 95.34 kg

DRUGS (5)
  1. PRISTIQ [Suspect]
     Indication: MAJOR DEPRESSION
     Dosage: 50 MG 1X PER 1 DAY, ORAL
     Route: 048
     Dates: start: 20080627
  2. ZANTAC 150 [Concomitant]
  3. DICLOFENAC SODIUM [Concomitant]
  4. CENTRUM CARDIO (MULTIVITAMIN/MULTIMINERAL/PHYTOSTEROLS) [Concomitant]
  5. DARVOCET-N (DEXTROPROPOXYPHENE/PARACETAMOL) [Concomitant]

REACTIONS (2)
  - HEADACHE [None]
  - NAIL DISORDER [None]
